FAERS Safety Report 9880528 (Version 1)
Quarter: 2014Q1

REPORT INFORMATION
  Report Type: Spontaneous
  Country: CA (occurrence: None)
  Receive Date: 20140205
  Receipt Date: 20140205
  Transmission Date: 20141002
  Serious: Yes (Life-Threatening, Hospitalization, Disabling, Other)
  Sender: FDA-Public Use
  Company Number: SYM-2014-16082

PATIENT
  Sex: Male

DRUGS (1)
  1. ALDARA [Suspect]
     Indication: PRODUCT USED FOR UNKNOWN INDICATION
     Dosage: 0.5 DOSAGE FORMS, 1 IN 1 D, ORAL
     Route: 048

REACTIONS (5)
  - Convulsion [None]
  - Exercise tolerance decreased [None]
  - Muscle injury [None]
  - Nervous system disorder [None]
  - Spinal pain [None]
